FAERS Safety Report 4975185-9 (Version None)
Quarter: 2006Q2

REPORT INFORMATION
  Report Type: 
  Country: None (occurrence: None)
  Receive Date: 20060418
  Receipt Date: 20060329
  Transmission Date: 20061013
  Serious: Yes (Other)
  Sender: FDA-Public Use
  Company Number: CH-GLAXOSMITHKLINE-B0420341A

PATIENT
  Age: 44 Year
  Sex: Female

DRUGS (4)
  1. SERETIDE [Suspect]
     Dosage: 250MCG FOUR TIMES PER DAY
     Route: 055
     Dates: start: 20060227, end: 20060327
  2. SERETIDE [Concomitant]
     Indication: ASTHMA
     Dosage: 250MG TWICE PER DAY
     Route: 055
     Dates: start: 20051001, end: 20060101
  3. VENTOLIN [Concomitant]
     Indication: ASTHMA
     Route: 065
     Dates: start: 20050801
  4. MULTI-VITAMIN [Concomitant]

REACTIONS (6)
  - APHASIA [None]
  - EYELID OEDEMA [None]
  - HEADACHE [None]
  - MEMORY IMPAIRMENT [None]
  - PALPITATIONS [None]
  - VISUAL DISTURBANCE [None]
